FAERS Safety Report 11419260 (Version 1)
Quarter: 2015Q3

REPORT INFORMATION
  Report Type: Spontaneous
  Country: US (occurrence: US)
  Receive Date: 20150826
  Receipt Date: 20150826
  Transmission Date: 20151125
  Serious: No
  Sender: FDA-Public Use
  Company Number: US-BIOGENIDEC-2015BI116831

PATIENT
  Sex: Female

DRUGS (1)
  1. TYSABRI [Suspect]
     Active Substance: NATALIZUMAB
     Indication: MULTIPLE SCLEROSIS
     Route: 042
     Dates: start: 20150506

REACTIONS (9)
  - Gastrointestinal disorder [Unknown]
  - Insomnia [Unknown]
  - Urinary tract disorder [Unknown]
  - Pain in extremity [Unknown]
  - Depression [Unknown]
  - Decreased appetite [Unknown]
  - Tremor [Unknown]
  - Anger [Unknown]
  - Headache [Unknown]
